FAERS Safety Report 4281088-8 (Version None)
Quarter: 2004Q1

REPORT INFORMATION
  Report Type: 
  Country: None (occurrence: None)
  Receive Date: 20040127
  Receipt Date: 20040120
  Transmission Date: 20041129
  Serious: Yes (Death)
  Sender: FDA-Public Use
  Company Number: USA-2004-0012554

PATIENT
  Age: 42 Year
  Sex: Male

DRUGS (4)
  1. OXYCODONE HCL [Suspect]
     Dosage: UNK
  2. TRAMADOL(TRAMADOL) [Suspect]
     Dosage: MG, UNK
  3. ALPRAZOLAM [Suspect]
     Dosage: UNK
  4. FENTANYL [Suspect]
     Dosage: UNK, MG, TRANSDERMAL
     Route: 062

REACTIONS (4)
  - CORONARY ARTERY ATHEROSCLEROSIS [None]
  - CORONARY ARTERY OCCLUSION [None]
  - INFLUENZA LIKE ILLNESS [None]
  - TOXICOLOGIC TEST ABNORMAL [None]
